FAERS Safety Report 16730952 (Version 1)
Quarter: 2019Q3

REPORT INFORMATION
  Report Type: Report from Study
  Country: US (occurrence: US)
  Receive Date: 20190822
  Receipt Date: 20190822
  Transmission Date: 20191005
  Serious: Yes (Hospitalization, Other)
  Sender: FDA-Public Use
  Company Number: US-INCYTE CORPORATION-2019IN008481

PATIENT

DRUGS (2)
  1. JAKAFI [Suspect]
     Active Substance: RUXOLITINIB
     Indication: MYELOFIBROSIS
     Dosage: UNK
     Route: 065
     Dates: start: 201801
  2. ASPIRIN                            /00002701/ [Suspect]
     Active Substance: ASPIRIN
     Indication: THROMBOSIS
     Dosage: UNK, EVERY THIRD DAY
     Route: 065
     Dates: start: 201708

REACTIONS (11)
  - Diabetes mellitus [Unknown]
  - Platelet count increased [Unknown]
  - Feeling abnormal [Unknown]
  - Fatigue [Unknown]
  - Hypersomnia [Unknown]
  - Weight increased [Unknown]
  - Headache [Unknown]
  - Anaemia [Unknown]
  - Peripheral swelling [Unknown]
  - White blood cell count increased [Unknown]
  - Epistaxis [Unknown]
